FAERS Safety Report 5179570-4 (Version None)
Quarter: 2006Q4

REPORT INFORMATION
  Report Type: 
  Country: None (occurrence: None)
  Receive Date: 20061219
  Receipt Date: 20061211
  Transmission Date: 20070319
  Serious: Yes (Other)
  Sender: FDA-Public Use
  Company Number: NZ-ROXANE LABORATORIES, INC-2006-BP-14354RO

PATIENT
  Age: 19 Year
  Sex: Male

DRUGS (1)
  1. AZATHIOPRINE [Suspect]
     Indication: COLITIS ULCERATIVE
     Dosage: 50 MG/DAY X 4 DAYS

REACTIONS (2)
  - BONE MARROW FAILURE [None]
  - RED BLOOD CELL ABNORMALITY [None]
